FAERS Safety Report 23820341 (Version 1)
Quarter: 2024Q2

REPORT INFORMATION
  Report Type: Spontaneous
  Country: US (occurrence: US)
  Receive Date: 20240506
  Receipt Date: 20240506
  Transmission Date: 20240716
  Serious: Yes (Other)
  Sender: FDA-Public Use
  Company Number: US-ABBVIE-5742790

PATIENT
  Sex: Male

DRUGS (5)
  1. SYNTHROID [Suspect]
     Active Substance: LEVOTHYROXINE SODIUM
     Indication: Product used for unknown indication
     Route: 048
  2. TIROSINT [Concomitant]
     Active Substance: LEVOTHYROXINE SODIUM
     Indication: Product used for unknown indication
  3. TEKTURNA [Concomitant]
     Active Substance: ALISKIREN HEMIFUMARATE
     Indication: Hypertension
  4. PROGESTERONE [Concomitant]
     Active Substance: PROGESTERONE
     Indication: Hormone replacement therapy
  5. CYTOMEL [Suspect]
     Active Substance: LIOTHYRONINE SODIUM
     Indication: Product used for unknown indication
     Dosage: 5MCG TABLET TAKES 2 IN THE MORNING AND 1 MID?AFTERNOON WITHOUT ANY FOOD.
     Route: 048

REACTIONS (6)
  - Inflammation [Unknown]
  - Drug ineffective [Unknown]
  - Depression [Unknown]
  - Hypertension [Unknown]
  - Unevaluable event [Unknown]
  - Feeling abnormal [Unknown]
